FAERS Safety Report 21364125 (Version 1)
Quarter: 2022Q3

REPORT INFORMATION
  Report Type: Spontaneous
  Country: US (occurrence: None)
  Receive Date: 20220921
  Receipt Date: 20220921
  Transmission Date: 20221027
  Serious: Yes (Death, Life-Threatening, Hospitalization, Disabling)
  Sender: FDA-Public Use
  Company Number: None

PATIENT
  Age: 45 Year
  Sex: Female
  Weight: 63 kg

DRUGS (1)
  1. TRULICITY [Suspect]
     Active Substance: DULAGLUTIDE
     Indication: Diabetes mellitus
     Dosage: OTHER FREQUENCY : WEEKLY;?OTHER ROUTE : INJECTION INTO STOMACH AREA;?
     Route: 050
     Dates: start: 20220613, end: 20220709

REACTIONS (8)
  - Hiccups [None]
  - Vaginal haemorrhage [None]
  - Photopsia [None]
  - Dizziness postural [None]
  - Cardiac arrest [None]
  - Pulse absent [None]
  - Cardiovascular disorder [None]
  - Menopause [None]

NARRATIVE: CASE EVENT DATE: 20220616
